FAERS Safety Report 7553035-4 (Version None)
Quarter: 2011Q2

REPORT INFORMATION
  Report Type: 
  Country: None (occurrence: None)
  Receive Date: 20110616
  Receipt Date: 20110608
  Transmission Date: 20111010
  Serious: Yes (Other)
  Sender: FDA-Public Use
  Company Number: GB-NAPPMUNDI-GBR-2010-0006434

PATIENT
  Sex: Male

DRUGS (22)
  1. BEZALIP-MONO [Concomitant]
     Dosage: UNK
     Dates: start: 20100205
  2. ZOPICLONE [Concomitant]
     Dosage: 3.75 MG, HALF AT NIGHT
     Dates: start: 20100205
  3. DOXAZOSIN MESYLATE [Concomitant]
     Dosage: 8 MG, DAILY
     Dates: start: 20100205
  4. METHOTREXATE [Concomitant]
     Dosage: 2.5 MG, 5 WEEKLY
  5. WARFARIN SODIUM [Concomitant]
     Dosage: 5 MG, UNK
  6. AMITRIPTYLINE HCL [Concomitant]
     Dosage: 25 MG, UNK
  7. WARFARIN SODIUM [Concomitant]
     Dosage: 3 MG, UNK
     Dates: start: 20100205
  8. WARFARIN SODIUM [Concomitant]
     Dosage: 500 MCG, UNK
  9. TELMISARTAN [Concomitant]
     Dosage: 80 MG, DAILY
     Dates: start: 20100205
  10. FOLIC ACID [Concomitant]
     Dosage: 5 MG, DAILY
     Dates: start: 20100205
  11. BUTRANS [Suspect]
     Indication: BACK PAIN
     Dosage: 10 MCG, Q1H
     Route: 062
     Dates: start: 20080418
  12. SOTALOL HCL [Concomitant]
     Dosage: 40 MG,1 AT AM, 2 AT NIGHT
     Dates: start: 20100205
  13. SUMATRIPTAN SUCCINATE [Concomitant]
     Dosage: 100 MG, DAILY
     Dates: start: 20100205
  14. BENDROFLUMETHIAZIDE [Concomitant]
     Dosage: 2.5 MG, DAILY
     Dates: start: 20100205
  15. DIGOXIN [Concomitant]
     Indication: ATRIAL FIBRILLATION
  16. WARFARIN SODIUM [Concomitant]
     Dosage: 1 UNK, UNK
  17. RANITIDINE [Concomitant]
     Indication: DYSPEPSIA
     Dosage: 150 MCG, BID PRN
     Dates: start: 20100205
  18. ACETAMINOPHEN [Concomitant]
     Dosage: 500 MG, 1 OR 2 4 TIMES/DAY
     Dates: start: 20100205
  19. DISOPYRAMIDE [Concomitant]
     Dosage: 250 MG, DAILY
  20. FLUVASTATIN [Concomitant]
     Indication: INSOMNIA
     Dosage: 40 MG, UNK
     Dates: start: 20030730
  21. LEVOTHYROXINE SODIUM [Concomitant]
     Dosage: 50 MCG, DAILY
     Dates: start: 20100205
  22. BETNOVATE [Concomitant]
     Dosage: UNK
     Dates: start: 20100205

REACTIONS (1)
  - ATRIAL FIBRILLATION [None]
